FAERS Safety Report 10061062 (Version 1)
Quarter: 2014Q2

REPORT INFORMATION
  Report Type: Report from Study
  Country: US (occurrence: US)
  Receive Date: 20140405
  Receipt Date: 20140405
  Transmission Date: 20141212
  Serious: Yes (Life-Threatening, Hospitalization)
  Sender: FDA-Public Use
  Company Number: US-TEVA-473563USA

PATIENT
  Age: 1 Year
  Sex: Female
  Weight: 10.3 kg

DRUGS (7)
  1. LESTAURTINIB [Suspect]
     Indication: ACUTE LYMPHOCYTIC LEUKAEMIA
     Dates: start: 20131206
  2. CYTARABINE [Suspect]
     Dates: start: 20131206
  3. DEXAMETHASONE [Suspect]
     Dates: start: 20131206
  4. HYDROCORTISONE [Suspect]
     Dates: start: 20131206
  5. MERCAPTOPURINE [Suspect]
     Dates: start: 20131206
  6. METHOTREXATE [Suspect]
     Dates: start: 20131206
  7. VINCRISTINE [Suspect]
     Dates: start: 20131206

REACTIONS (3)
  - Cognitive disorder [Recovered/Resolved]
  - Sinus tachycardia [Recovered/Resolved]
  - Mental disorder [Recovered/Resolved]
